FAERS Safety Report 24269896 (Version 1)
Quarter: 2024Q3

REPORT INFORMATION
  Report Type: Report from Study
  Country: CA (occurrence: CA)
  Receive Date: 20240830
  Receipt Date: 20240830
  Transmission Date: 20241016
  Serious: Yes (Hospitalization, Other)
  Sender: COVIS PHARMA
  Company Number: CA-AstraZeneca-2019SF73193

PATIENT
  Age: 45 Year
  Sex: Male

DRUGS (5)
  1. OMNARIS [Suspect]
     Active Substance: CICLESONIDE
     Dosage: UNKNOWN UNKNOWN
     Route: 065
  2. ALBUTEROL SULFATE [Suspect]
     Active Substance: ALBUTEROL SULFATE
     Dosage: UNKNOWN UNKNOWN
     Route: 065
  3. SINGULAIR [Suspect]
     Active Substance: MONTELUKAST SODIUM
     Route: 065
  4. TIOTROPIUM [Suspect]
     Active Substance: TIOTROPIUM
     Route: 055
  5. ZENHALE [Suspect]
     Active Substance: FORMOTEROL FUMARATE\MOMETASONE FUROATE
     Route: 055

REACTIONS (10)
  - Asthma [Unknown]
  - Full blood count abnormal [Unknown]
  - Diabetes mellitus [Unknown]
  - Gastrooesophageal reflux disease [Unknown]
  - Immunodeficiency [Unknown]
  - Obstructive airways disorder [Unknown]
  - Atelectasis [Unknown]
  - Blood immunoglobulin G decreased [Unknown]
  - Bronchiectasis [Unknown]
  - Malaise [Unknown]
